FAERS Safety Report 13290421 (Version 2)
Quarter: 2017Q1

REPORT INFORMATION
  Report Type: Spontaneous
  Country: CA (occurrence: CA)
  Receive Date: 20170302
  Receipt Date: 20170310
  Transmission Date: 20170428
  Serious: Yes (Death)
  Sender: FDA-Public Use
  Company Number: CA-PFIZER INC-2016330557

PATIENT
  Age: 44 Year
  Sex: Male

DRUGS (13)
  1. XELJANZ [Suspect]
     Active Substance: TOFACITINIB CITRATE
     Indication: RHEUMATOID ARTHRITIS
     Dosage: 5 MG, TWICE DAILY
     Route: 048
     Dates: start: 20160628
  2. ELAVIL [Concomitant]
     Active Substance: AMITRIPTYLINE HYDROCHLORIDE
  3. PREGABALIN. [Concomitant]
     Active Substance: PREGABALIN
  4. NORVASC [Concomitant]
     Active Substance: AMLODIPINE BESYLATE
  5. HYDROCHLOROTHIAZIDE. [Concomitant]
     Active Substance: HYDROCHLOROTHIAZIDE
  6. ACTONEL [Concomitant]
     Active Substance: RISEDRONATE SODIUM
     Dosage: UNK
  7. HYDROMORPHONE [Concomitant]
     Active Substance: HYDROMORPHONE
     Dosage: UNK
  8. CRESTOR [Concomitant]
     Active Substance: ROSUVASTATIN CALCIUM
  9. JANUMET [Concomitant]
     Active Substance: METFORMIN HYDROCHLORIDE\SITAGLIPTIN PHOSPHATE
  10. PANTOLOC /01263204/ [Concomitant]
     Active Substance: PANTOPRAZOLE SODIUM
  11. PREDNISONE. [Concomitant]
     Active Substance: PREDNISONE
     Dosage: 20 MG, UNK
  12. COVERSYL PLUS /01421201/ [Concomitant]
     Active Substance: INDAPAMIDE\PERINDOPRIL ERBUMINE
  13. GLYCOZIDE [Concomitant]

REACTIONS (2)
  - Death [Fatal]
  - Drug ineffective [Unknown]

NARRATIVE: CASE EVENT DATE: 201701
